FAERS Safety Report 6604126-3 (Version None)
Quarter: 2010Q1

REPORT INFORMATION
  Report Type: 
  Country: None (occurrence: None)
  Receive Date: 20100226
  Receipt Date: 20090601
  Transmission Date: 20100710
  Serious: No
  Sender: FDA-Public Use
  Company Number: A0787729A

PATIENT

DRUGS (1)
  1. LAMOTRIGINE [Suspect]
     Route: 048

REACTIONS (1)
  - HYPERSENSITIVITY [None]
